FAERS Safety Report 7994723-5 (Version None)
Quarter: 2011Q4

REPORT INFORMATION
  Report Type: 
  Country: None (occurrence: None)
  Receive Date: 20111220
  Receipt Date: 20111212
  Transmission Date: 20120403
  Serious: Yes (Other)
  Sender: FDA-Public Use
  Company Number: GB-JNJFOC-20111109808

PATIENT
  Age: 32 Year
  Sex: Male

DRUGS (4)
  1. PALIPERIDONE [Suspect]
     Dosage: 150ML (75 ML TWICE)
     Route: 030
  2. PALIPERIDONE [Suspect]
     Route: 030
  3. PALIPERIDONE [Suspect]
     Indication: BIPOLAR DISORDER
     Route: 030
     Dates: start: 20111107
  4. PALIPERIDONE [Suspect]
     Route: 030
     Dates: start: 20111001

REACTIONS (6)
  - BLOOD URINE PRESENT [None]
  - DRUG INEFFECTIVE [None]
  - URINARY TRACT INFECTION [None]
  - TESTICULAR PAIN [None]
  - BACK PAIN [None]
  - INSOMNIA [None]
